FAERS Safety Report 14263445 (Version 2)
Quarter: 2019Q1

REPORT INFORMATION
  Report Type: Spontaneous
  Country: US (occurrence: US)
  Receive Date: 20171208
  Receipt Date: 20190220
  Transmission Date: 20190417
  Serious: Yes (Hospitalization, Other)
  Sender: FDA-Public Use
  Company Number: US-JNJFOC-20171203178

PATIENT
  Age: 56 Year
  Sex: Female
  Weight: 58 kg

DRUGS (15)
  1. METHENAMINE [Concomitant]
     Active Substance: METHENAMINE
     Indication: PRODUCT USED FOR UNKNOWN INDICATION
     Route: 065
  2. LEVOTHYROXINE. [Concomitant]
     Active Substance: LEVOTHYROXINE
     Indication: PRODUCT USED FOR UNKNOWN INDICATION
     Route: 065
  3. LEVETIRACETAM. [Concomitant]
     Active Substance: LEVETIRACETAM
     Indication: EPILEPSY
     Route: 065
     Dates: start: 201510
  4. LEVETIRACETAM. [Concomitant]
     Active Substance: LEVETIRACETAM
     Indication: EPILEPSY
     Dosage: OVER JAN-2016 AND FEB-2016
     Route: 065
     Dates: start: 2016
  5. TOPIRAMATE. [Suspect]
     Active Substance: TOPIRAMATE
     Indication: EPILEPSY
     Route: 048
     Dates: start: 20151023
  6. PHENOBARBITAL. [Interacting]
     Active Substance: PHENOBARBITAL
     Indication: EPILEPSY
     Dosage: 32.4 MG IN THE MORNING AND AFTERNOON WITH 64.8 MG AT BEDTIME
     Route: 065
     Dates: end: 201510
  7. PHENOBARBITAL. [Interacting]
     Active Substance: PHENOBARBITAL
     Indication: EPILEPSY
     Route: 065
     Dates: start: 201510, end: 201512
  8. VITAMIN D [Concomitant]
     Active Substance: CHOLECALCIFEROL
     Indication: PRODUCT USED FOR UNKNOWN INDICATION
     Route: 065
  9. CALCIUM CARBONATE. [Concomitant]
     Active Substance: CALCIUM CARBONATE
     Indication: PRODUCT USED FOR UNKNOWN INDICATION
     Route: 065
  10. TOPIRAMATE. [Suspect]
     Active Substance: TOPIRAMATE
     Indication: EPILEPSY
     Dosage: 200 MG IN THE MORNING AND 300 MG AT BEDTIME.
     Route: 048
  11. TOPIRAMATE. [Suspect]
     Active Substance: TOPIRAMATE
     Indication: EPILEPSY
     Route: 048
     Dates: start: 201412, end: 201510
  12. PHENOBARBITAL. [Interacting]
     Active Substance: PHENOBARBITAL
     Indication: EPILEPSY
     Route: 065
     Dates: start: 201512, end: 20160106
  13. PHENOBARBITAL. [Interacting]
     Active Substance: PHENOBARBITAL
     Indication: EPILEPSY
     Dosage: 32.4 MG IN THE MORNING AND AFTERNOON WITH 64.8 MG AT BEDTIME
     Route: 065
     Dates: start: 201510
  14. MAGNESIUM [Concomitant]
     Active Substance: MAGNESIUM
     Indication: PRODUCT USED FOR UNKNOWN INDICATION
     Dosage: DOSE: 1000 MG/5 ML 3 TIMES A DAY
     Route: 065
  15. POLYETHYLENE GLYCOL [Concomitant]
     Active Substance: POLYETHYLENE GLYCOLS
     Indication: PRODUCT USED FOR UNKNOWN INDICATION
     Route: 065

REACTIONS (3)
  - Hypothermia [Recovered/Resolved]
  - Hyperammonaemia [Recovering/Resolving]
  - Drug interaction [Recovered/Resolved]

NARRATIVE: CASE EVENT DATE: 2015
